FAERS Safety Report 12113871 (Version 1)
Quarter: 2016Q1

REPORT INFORMATION
  Report Type: Spontaneous
  Country: US (occurrence: None)
  Receive Date: 20160223
  Receipt Date: 20160223
  Transmission Date: 20160526
  Serious: Yes (Hospitalization, Other)
  Sender: FDA-Public Use
  Company Number: None

PATIENT
  Age: 30 Year
  Sex: Female
  Weight: 58.97 kg

DRUGS (1)
  1. MIRENA [Suspect]
     Active Substance: LEVONORGESTREL

REACTIONS (8)
  - Quality of life decreased [None]
  - Anxiety [None]
  - Seizure [None]
  - Breast pain [None]
  - Insomnia [None]
  - Arthralgia [None]
  - Alopecia [None]
  - Premature menopause [None]
